FAERS Safety Report 8130138-7 (Version None)
Quarter: 2012Q1

REPORT INFORMATION
  Report Type: 
  Country: None (occurrence: None)
  Receive Date: 20120210
  Receipt Date: 20120203
  Transmission Date: 20120608
  Serious: Yes (Other)
  Sender: FDA-Public Use
  Company Number: JP-PFIZER INC-2012030986

PATIENT

DRUGS (1)
  1. SULFASALAZINE [Suspect]
     Indication: CROHN'S DISEASE
     Dosage: 3 G, 1X/DAY
     Route: 048
     Dates: start: 20120121

REACTIONS (6)
  - FLUSHING [None]
  - DECREASED APPETITE [None]
  - OEDEMA MOUTH [None]
  - RASH GENERALISED [None]
  - PYREXIA [None]
  - WHITE BLOOD CELL COUNT DECREASED [None]
